FAERS Safety Report 4619330-3 (Version None)
Quarter: 2005Q2

REPORT INFORMATION
  Report Type: 
  Country: None (occurrence: None)
  Receive Date: 20050321
  Receipt Date: 20040311
  Transmission Date: 20051028
  Serious: Yes (Other)
  Sender: FDA-Public Use
  Company Number: 2004-03-0859

PATIENT

DRUGS (2)
  1. PEG-INTRON [Suspect]
  2. REBETOL [Suspect]

REACTIONS (1)
  - PANCREATITIS [None]
